FAERS Safety Report 4562323-5 (Version None)
Quarter: 2005Q1

REPORT INFORMATION
  Report Type: 
  Country: None (occurrence: None)
  Receive Date: 20050127
  Receipt Date: 20041021
  Transmission Date: 20050727
  Serious: Yes (Hospitalization)
  Sender: FDA-Public Use
  Company Number: DE-NOVOPROD-240024

PATIENT
  Age: 56 Year
  Sex: Female
  Weight: 72 kg

DRUGS (2)
  1. L-THYROXIN ^HENNING BERLIN^ [Concomitant]
     Indication: ILL-DEFINED DISORDER
     Dosage: 1 UNK, QD
     Route: 048
     Dates: start: 19910101
  2. ACTIVELLE [Suspect]
     Indication: ILL-DEFINED DISORDER
     Dates: start: 20040422

REACTIONS (2)
  - FALL [None]
  - FRACTURE [None]
